FAERS Safety Report 21381143 (Version 1)
Quarter: 2022Q3

REPORT INFORMATION
  Report Type: Spontaneous
  Country: US (occurrence: US)
  Receive Date: 20220927
  Receipt Date: 20220927
  Transmission Date: 20221027
  Serious: Yes (Other)
  Sender: FDA-Public Use
  Company Number: US-PFIZER INC-202201182588

PATIENT
  Age: 77 Year
  Sex: Female

DRUGS (4)
  1. VANCOMYCIN HYDROCHLORIDE [Suspect]
     Active Substance: VANCOMYCIN HYDROCHLORIDE
     Indication: Lyme disease
     Dosage: UNK
     Dates: start: 202007
  2. VANCOMYCIN HYDROCHLORIDE [Suspect]
     Active Substance: VANCOMYCIN HYDROCHLORIDE
     Dosage: 25 MG/ML
     Route: 048
     Dates: start: 2021
  3. VANCOMYCIN HYDROCHLORIDE [Suspect]
     Active Substance: VANCOMYCIN HYDROCHLORIDE
     Dosage: UNK
     Dates: start: 202106
  4. LEVAQUIN [Concomitant]
     Active Substance: LEVOFLOXACIN
     Indication: Cystitis
     Dosage: UNK
     Dates: start: 2020

REACTIONS (7)
  - Diverticulitis [Unknown]
  - Lyme disease [Unknown]
  - Off label use [Unknown]
  - Cognitive disorder [Unknown]
  - Memory impairment [Unknown]
  - Movement disorder [Unknown]
  - COVID-19 [Unknown]
